FAERS Safety Report 18501809 (Version 1)
Quarter: 2020Q4

REPORT INFORMATION
  Report Type: Other
  Country: CA (occurrence: CA)
  Receive Date: 20201113
  Receipt Date: 20201113
  Transmission Date: 20210114
  Serious: Yes (Other)
  Sender: FDA-Public Use
  Company Number: CA-VALIDUS PHARMACEUTICALS LLC-CA-2020VAL000961

PATIENT

DRUGS (5)
  1. FUROSEMIDE. [Suspect]
     Active Substance: FUROSEMIDE
     Dosage: 20 MG, QD (1 EVERY 1 DAYS)
     Route: 065
  2. FUROSEMIDE. [Suspect]
     Active Substance: FUROSEMIDE
     Indication: ASCITES
     Dosage: 40 MG, QD (1 EVERY 1 DAYS)
     Route: 065
  3. SANDOSTATIN LAR DEPOT [Suspect]
     Active Substance: OCTREOTIDE ACETATE
     Indication: NEUROENDOCRINE TUMOUR
     Dosage: 30 MG, QM, (1 EVERY 1 MONTH)
     Route: 030
  4. SANDOSTATIN LAR DEPOT [Suspect]
     Active Substance: OCTREOTIDE ACETATE
     Dosage: 30 MG, Q3W (1 EVERY 3 WEEKS)
     Route: 030
  5. SANDOSTATIN LAR DEPOT [Suspect]
     Active Substance: OCTREOTIDE ACETATE
     Indication: NEUROENDOCRINE TUMOUR
     Dosage: 30 MG, QM (1 EVERY 1 MONTH)
     Route: 030

REACTIONS (35)
  - Flatulence [Unknown]
  - Heart rate decreased [Unknown]
  - Influenza [Unknown]
  - Malaise [Unknown]
  - Ascites [Unknown]
  - Malignant neoplasm progression [Unknown]
  - Abdominal pain [Unknown]
  - Chills [Unknown]
  - Intestinal obstruction [Unknown]
  - Pain [Unknown]
  - Dizziness postural [Unknown]
  - Weight decreased [Unknown]
  - Fluid retention [Unknown]
  - Dehydration [Unknown]
  - Asthenia [Unknown]
  - Inappropriate schedule of product administration [Unknown]
  - Fatigue [Unknown]
  - Blood pressure diastolic decreased [Unknown]
  - Dizziness [Unknown]
  - Blood pressure increased [Unknown]
  - Intervertebral disc protrusion [Unknown]
  - Metastases to liver [Unknown]
  - Pain in extremity [Unknown]
  - Abdominal distension [Unknown]
  - Human epidermal growth factor receptor decreased [Unknown]
  - Blood creatinine increased [Unknown]
  - Hypotension [Unknown]
  - Abdominal pain upper [Unknown]
  - Dyspepsia [Unknown]
  - Blood pressure systolic decreased [Unknown]
  - Muscle spasms [Unknown]
  - Platelet count decreased [Unknown]
  - Gastrointestinal disorder [Unknown]
  - Amino acid level decreased [Unknown]
  - Hepatic enzyme increased [Unknown]
